FAERS Safety Report 14264611 (Version 1)
Quarter: 2017Q4

REPORT INFORMATION
  Report Type: Report from Study
  Country: US (occurrence: US)
  Receive Date: 20171208
  Receipt Date: 20171208
  Transmission Date: 20180321
  Serious: Yes (Other)
  Sender: FDA-Public Use
  Company Number: US-JAZZ-2017-US-008509

PATIENT
  Sex: Female

DRUGS (23)
  1. LATUDA [Concomitant]
     Active Substance: LURASIDONE HYDROCHLORIDE
  2. NADOLOL. [Concomitant]
     Active Substance: NADOLOL
  3. PREMARIN [Concomitant]
     Active Substance: ESTROGENS, CONJUGATED
  4. TUMS                               /00193601/ [Concomitant]
     Active Substance: CALCIUM CARBONATE\MAGNESIUM CARBONATE\MAGNESIUM TRISILICATE
  5. VENTOLIN HFA [Concomitant]
     Active Substance: ALBUTEROL SULFATE
  6. GARCINIA CAMBOGIA                  /01446804/ [Concomitant]
  7. SENNA LAXATIVE [Concomitant]
     Active Substance: SENNOSIDES
  8. ACYCLOVIR                          /00587301/ [Concomitant]
     Active Substance: ACYCLOVIR
  9. ALPRAZOLAM. [Concomitant]
     Active Substance: ALPRAZOLAM
  10. PROZAC [Concomitant]
     Active Substance: FLUOXETINE HYDROCHLORIDE
  11. ROBITUSSIN MUCUS PLUS CHEST CONGESTION [Concomitant]
     Active Substance: GUAIFENESIN
  12. ADVAIR HFA [Concomitant]
     Active Substance: FLUTICASONE PROPIONATE\SALMETEROL XINAFOATE
  13. BUSPIRONE [Suspect]
     Active Substance: BUSPIRONE HYDROCHLORIDE
     Indication: PRODUCT USED FOR UNKNOWN INDICATION
  14. CLONAZEPAM. [Concomitant]
     Active Substance: CLONAZEPAM
  15. NASACORT [Concomitant]
     Active Substance: TRIAMCINOLONE ACETONIDE
  16. CLARITIN [Concomitant]
     Active Substance: LORATADINE
  17. FUROSEMIDE. [Concomitant]
     Active Substance: FUROSEMIDE
  18. LORAZEPAM. [Concomitant]
     Active Substance: LORAZEPAM
  19. XYREM [Suspect]
     Active Substance: SODIUM OXYBATE
     Indication: NARCOLEPSY
     Dosage: 4.5 G, BID
     Route: 048
     Dates: start: 201204
  20. WELLBUTRIN [Concomitant]
     Active Substance: BUPROPION HYDROCHLORIDE
  21. SINGULAIR [Concomitant]
     Active Substance: MONTELUKAST SODIUM
  22. LAMOTRIGINE. [Concomitant]
     Active Substance: LAMOTRIGINE
  23. TYLENOL EXTRA STRENGTH [Concomitant]
     Active Substance: ACETAMINOPHEN

REACTIONS (2)
  - Depression [Not Recovered/Not Resolved]
  - Drug ineffective [Unknown]
